FAERS Safety Report 6490189-5 (Version None)
Quarter: 2009Q4

REPORT INFORMATION
  Report Type: 
  Country: None (occurrence: None)
  Receive Date: 20091211
  Receipt Date: 20091204
  Transmission Date: 20100525
  Serious: Yes (Other)
  Sender: FDA-Public Use
  Company Number: US-ROCHE-672701

PATIENT
  Sex: Female
  Weight: 88.5 kg

DRUGS (1)
  1. CAPECITABINE [Suspect]
     Indication: BREAST CANCER
     Route: 048
     Dates: start: 20081108, end: 20091207

REACTIONS (2)
  - BREAST CANCER METASTATIC [None]
  - DRUG EFFECT DECREASED [None]
